FAERS Safety Report 12606542 (Version 1)
Quarter: 2016Q3

REPORT INFORMATION
  Report Type: Spontaneous
  Country: US (occurrence: US)
  Receive Date: 20160729
  Receipt Date: 20160729
  Transmission Date: 20161109
  Serious: Yes (Other)
  Sender: FDA-Public Use
  Company Number: US-FRESENIUS KABI-FK201604831

PATIENT
  Sex: Female

DRUGS (1)
  1. NEOSTIGMINE (MANUFACTURER UNKNOWN) (NEOSTIGMINE, METHYLSULFATE) [Suspect]
     Active Substance: NEOSTIGMINE
     Indication: FUNCTIONAL GASTROINTESTINAL DISORDER
     Route: 042

REACTIONS (8)
  - Off label use [Recovered/Resolved]
  - Chest pain [Recovered/Resolved]
  - Bradycardia [Recovered/Resolved]
  - Muscle rigidity [Recovered/Resolved]
  - Nausea [Recovered/Resolved]
  - Hypotension [Recovered/Resolved]
  - Seizure like phenomena [Recovered/Resolved]
  - Unresponsive to stimuli [Recovered/Resolved]
